FAERS Safety Report 13278759 (Version 1)
Quarter: 2017Q1

REPORT INFORMATION
  Report Type: Spontaneous
  Country: US (occurrence: US)
  Receive Date: 20170228
  Receipt Date: 20170228
  Transmission Date: 20170428
  Serious: No
  Sender: FDA-Public Use
  Company Number: US-PFIZER INC-2017083299

PATIENT

DRUGS (4)
  1. HYDROCODONE [Suspect]
     Active Substance: HYDROCODONE
     Indication: SPONDYLITIS
  2. GABAPENTIN. [Suspect]
     Active Substance: GABAPENTIN
     Indication: CONTUSION
     Dosage: UNK
  3. GABAPENTIN. [Suspect]
     Active Substance: GABAPENTIN
     Indication: SPONDYLITIS
  4. HYDROCODONE [Suspect]
     Active Substance: HYDROCODONE
     Indication: CONTUSION
     Dosage: UNK

REACTIONS (1)
  - Drug ineffective for unapproved indication [Unknown]
